FAERS Safety Report 8506504-4 (Version None)
Quarter: 2012Q2

REPORT INFORMATION
  Report Type: 
  Country: None (occurrence: None)
  Receive Date: 20120405
  Receipt Date: 20090420
  Transmission Date: 20120825
  Serious: Yes (Other)
  Sender: FDA-Public Use
  Company Number: PHEH2009US03116

PATIENT
  Age: 86 Year
  Sex: Female
  Weight: 63.5 kg

DRUGS (8)
  1. SYNTHROID [Suspect]
  2. LASIX [Concomitant]
  3. MICARDIS [Suspect]
  4. ADVAIR HFA [Suspect]
  5. POTASSIUM CHLORIDE [Suspect]
  6. RECLAST [Suspect]
     Indication: OSTEOPOROSIS
     Dosage: 5 MG, YEARLY, INFUSION
     Dates: start: 20090311, end: 20090311
  7. XANAX [Concomitant]
  8. MOBIC [Suspect]

REACTIONS (5)
  - PAIN [None]
  - ARTHRALGIA [None]
  - CHILLS [None]
  - DYSSTASIA [None]
  - FEELING HOT [None]
